FAERS Safety Report 18564343 (Version 1)
Quarter: 2020Q4

REPORT INFORMATION
  Report Type: Other
  Country: ME (occurrence: ME)
  Receive Date: 20201201
  Receipt Date: 20201201
  Transmission Date: 20210114
  Serious: Yes (Death)
  Sender: FDA-Public Use
  Company Number: ME-ROCHE-2723307

PATIENT
  Sex: Male
  Weight: 100 kg

DRUGS (18)
  1. CHLOROPYRAMINE [Concomitant]
     Active Substance: CHLOROPYRAMINE
     Route: 030
     Dates: start: 20190726, end: 20190726
  2. PARACETAMOL [Concomitant]
     Active Substance: ACETAMINOPHEN
     Route: 048
     Dates: start: 20191225, end: 20191225
  3. TOLPERISONE [Concomitant]
     Active Substance: TOLPERISONE
     Route: 048
     Dates: start: 20200612
  4. CHLOROPYRAMINE [Concomitant]
     Active Substance: CHLOROPYRAMINE
     Route: 030
     Dates: start: 20191225, end: 20191225
  5. PARACETAMOL [Concomitant]
     Active Substance: ACETAMINOPHEN
     Route: 048
     Dates: start: 20200612, end: 20200612
  6. CHLOROPYRAMINE [Concomitant]
     Active Substance: CHLOROPYRAMINE
     Route: 030
     Dates: start: 20200612, end: 20200612
  7. PARACETAMOL [Concomitant]
     Active Substance: ACETAMINOPHEN
     Route: 048
     Dates: start: 20190726, end: 20190726
  8. PARACETAMOL [Concomitant]
     Active Substance: ACETAMINOPHEN
     Indication: PREMEDICATION
     Route: 048
     Dates: start: 20190712, end: 20190712
  9. OCRELIZUMAB. [Suspect]
     Active Substance: OCRELIZUMAB
     Indication: PRIMARY PROGRESSIVE MULTIPLE SCLEROSIS
     Dosage: VISIT 2
     Route: 042
     Dates: start: 20190712, end: 20190712
  10. OCRELIZUMAB. [Suspect]
     Active Substance: OCRELIZUMAB
     Dosage: VISIT 3
     Route: 042
     Dates: start: 20190726, end: 20190726
  11. METHYLPREDNISOLONE. [Concomitant]
     Active Substance: METHYLPREDNISOLONE
     Route: 042
     Dates: start: 20190726, end: 20190726
  12. METHYLPREDNISOLONE. [Concomitant]
     Active Substance: METHYLPREDNISOLONE
     Route: 042
     Dates: start: 20191225, end: 20191225
  13. CHLOROPYRAMINE [Concomitant]
     Active Substance: CHLOROPYRAMINE
     Indication: PREMEDICATION
     Route: 030
     Dates: start: 20190712, end: 20190712
  14. OCRELIZUMAB. [Suspect]
     Active Substance: OCRELIZUMAB
     Dosage: VISIT 4
     Route: 042
     Dates: start: 20191225, end: 20191225
  15. METHYLPREDNISOLONE. [Concomitant]
     Active Substance: METHYLPREDNISOLONE
     Route: 042
     Dates: start: 20200612, end: 20200612
  16. OCRELIZUMAB. [Suspect]
     Active Substance: OCRELIZUMAB
     Dosage: VISIT 5
     Route: 042
     Dates: start: 20200612, end: 20200612
  17. MILGAMMA [Concomitant]
     Route: 048
     Dates: start: 20200612
  18. METHYLPREDNISOLONE. [Concomitant]
     Active Substance: METHYLPREDNISOLONE
     Indication: PREMEDICATION
     Route: 042
     Dates: start: 20190712, end: 20190712

REACTIONS (1)
  - COVID-19 [Fatal]
